FAERS Safety Report 6973578-1 (Version None)
Quarter: 2010Q3

REPORT INFORMATION
  Report Type: 
  Country: None (occurrence: None)
  Receive Date: 20100909
  Receipt Date: 20100903
  Transmission Date: 20110219
  Serious: Yes (Death)
  Sender: FDA-Public Use
  Company Number: US-CELGENEUS-163-C5013-10090606

PATIENT
  Sex: Male
  Weight: 78.542 kg

DRUGS (6)
  1. CC-5013\PLACEBO [Suspect]
     Indication: PROSTATE CANCER
     Route: 048
     Dates: start: 20100510
  2. CC-5013\PLACEBO [Suspect]
     Route: 048
     Dates: start: 20100823
  3. DOCETAXEL [Suspect]
     Indication: PROSTATE CANCER
     Route: 051
     Dates: start: 20100510
  4. DOCETAXEL [Suspect]
     Route: 051
     Dates: start: 20100823
  5. PREDNISONE [Suspect]
     Indication: PROSTATE CANCER
     Route: 065
     Dates: start: 20100510
  6. PREDNISONE [Suspect]
     Route: 065
     Dates: start: 20100823

REACTIONS (1)
  - DEATH [None]
